FAERS Safety Report 6150993-X (Version None)
Quarter: 2009Q2

REPORT INFORMATION
  Report Type: 
  Country: None (occurrence: None)
  Receive Date: 20090410
  Receipt Date: 20090204
  Transmission Date: 20091009
  Serious: No
  Sender: FDA-Public Use
  Company Number: A0766624A

PATIENT
  Age: 71 Year
  Sex: Female

DRUGS (9)
  1. TYKERB [Suspect]
     Indication: BREAST CANCER
     Dosage: 5TAB PER DAY
     Route: 048
     Dates: start: 20090128
  2. XELODA [Suspect]
     Route: 048
     Dates: start: 20090128
  3. BLOOD PRESSURE MEDICATION [Concomitant]
  4. BLOOD THINNER [Concomitant]
  5. VITAMINS [Concomitant]
  6. IRON [Concomitant]
  7. VITAMIN D [Concomitant]
  8. ASCORBIC ACID [Concomitant]
  9. CHOLESTEROL REDUCING AGENT [Concomitant]

REACTIONS (5)
  - DRY MOUTH [None]
  - ORAL DISCOMFORT [None]
  - ORAL FUNGAL INFECTION [None]
  - STOMATITIS [None]
  - TONGUE DISORDER [None]
